FAERS Safety Report 5913871-4 (Version None)
Quarter: 2008Q4

REPORT INFORMATION
  Report Type: 
  Country: None (occurrence: None)
  Receive Date: 20081009
  Receipt Date: 20081001
  Transmission Date: 20090506
  Serious: Yes (Other)
  Sender: FDA-Public Use
  Company Number: B0406990A

PATIENT
  Age: 51 Year
  Sex: Male

DRUGS (6)
  1. SEROXAT [Suspect]
     Indication: STRESS
     Route: 048
     Dates: start: 20040806
  2. ALCOHOL [Suspect]
     Route: 048
     Dates: start: 20050217
  3. MELITRACEN [Concomitant]
     Dates: start: 20040115
  4. FLUPENTHIXOL [Concomitant]
     Dates: start: 20040115
  5. TRAZODONE HCL [Concomitant]
     Dates: start: 20040115
  6. DIAZEPAM [Concomitant]
     Dosage: 2MG AT NIGHT
     Dates: start: 20040806

REACTIONS (18)
  - ABNORMAL BEHAVIOUR [None]
  - ABNORMAL SLEEP-RELATED EVENT [None]
  - ACCIDENTAL OVERDOSE [None]
  - AGGRESSION [None]
  - ALCOHOL POISONING [None]
  - AMNESIA [None]
  - CIRCULATORY COLLAPSE [None]
  - CONFUSIONAL STATE [None]
  - COPROLALIA [None]
  - CRYING [None]
  - DEPRESSION [None]
  - FATIGUE [None]
  - FEELING DRUNK [None]
  - IRRITABILITY [None]
  - MOOD SWINGS [None]
  - MORBID THOUGHTS [None]
  - NIGHTMARE [None]
  - SCREAMING [None]
